FAERS Safety Report 20459768 (Version 1)
Quarter: 2022Q1

REPORT INFORMATION
  Report Type: Other
  Country: IN (occurrence: None)
  Receive Date: 20220211
  Receipt Date: 20220211
  Transmission Date: 20220423
  Serious: Yes (Other)
  Sender: FDA-Public Use
  Company Number: IN-ROCHE-3019529

PATIENT
  Sex: Male

DRUGS (1)
  1. TECENTRIQ [Suspect]
     Active Substance: ATEZOLIZUMAB
     Indication: Squamous cell carcinoma
     Dosage: 21 DAYS
     Route: 041

REACTIONS (4)
  - Dysphagia [Unknown]
  - Dysphonia [Unknown]
  - Cough [Unknown]
  - Chest pain [Unknown]
